FAERS Safety Report 6060547-1 (Version None)
Quarter: 2009Q1

REPORT INFORMATION
  Report Type: 
  Country: None (occurrence: None)
  Receive Date: 20090202
  Receipt Date: 20090122
  Transmission Date: 20090719
  Serious: No
  Sender: FDA-Public Use
  Company Number: US-JNJFOC-20090106263

PATIENT
  Sex: Female
  Weight: 121.11 kg

DRUGS (10)
  1. FENTANYL TRANSDERMAL SYSTEM [Suspect]
     Indication: ARTHRALGIA
     Route: 062
  2. FENTANYL TRANSDERMAL SYSTEM [Suspect]
     Indication: BACK PAIN
     Route: 062
  3. CLONAZEPAM [Concomitant]
     Indication: NEUROPATHY PERIPHERAL
     Route: 048
  4. MOBIC [Concomitant]
     Indication: ARTHRITIS
     Route: 048
  5. METHOCARBAMOL [Concomitant]
     Route: 048
  6. XANAX [Concomitant]
     Indication: GASTRIC DISORDER
     Route: 048
  7. CELEXA [Concomitant]
     Indication: NEUROPATHY PERIPHERAL
     Route: 048
  8. LIPITOR [Concomitant]
     Indication: BLOOD CHOLESTEROL INCREASED
     Route: 048
  9. DOXAPHENE [Concomitant]
     Route: 048
  10. METFORMIN HCL [Concomitant]
     Indication: DIABETES MELLITUS
     Route: 048

REACTIONS (4)
  - APPLICATION SITE URTICARIA [None]
  - INCORRECT DRUG ADMINISTRATION DURATION [None]
  - NAUSEA [None]
  - WRONG TECHNIQUE IN DRUG USAGE PROCESS [None]
